FAERS Safety Report 5837676-8 (Version None)
Quarter: 2008Q3

REPORT INFORMATION
  Report Type: 
  Country: None (occurrence: None)
  Receive Date: 20080807
  Receipt Date: 20080728
  Transmission Date: 20090109
  Serious: Yes (Other)
  Sender: FDA-Public Use
  Company Number: GB-ABBOTT-08P-167-0455176-00

PATIENT
  Sex: Female

DRUGS (2)
  1. HUMIRA [Suspect]
     Indication: RHEUMATOID ARTHRITIS
     Route: 058
     Dates: start: 20080306
  2. HUMIRA [Suspect]

REACTIONS (8)
  - ANXIETY [None]
  - DECREASED APPETITE [None]
  - DEPRESSION [None]
  - MASS [None]
  - OEDEMA PERIPHERAL [None]
  - SLEEP DISORDER [None]
  - SWELLING FACE [None]
  - URINARY TRACT INFECTION [None]
